FAERS Safety Report 4958235-5 (Version None)
Quarter: 2006Q1

REPORT INFORMATION
  Report Type: 
  Country: None (occurrence: None)
  Receive Date: 20060330
  Receipt Date: 20041203
  Transmission Date: 20060701
  Serious: Yes (Other)
  Sender: FDA-Public Use
  Company Number: GB-GLAXOSMITHKLINE-B0359740A

PATIENT
  Sex: Female

DRUGS (6)
  1. SEROXAT [Suspect]
     Route: 065
  2. DIAZEPAM [Concomitant]
     Route: 065
  3. THYROXINE [Concomitant]
     Route: 065
  4. ATORVASTATIN CALCIUM [Concomitant]
     Route: 065
  5. ST JOHNS WORT [Concomitant]
     Route: 065
  6. CITALOPRAM HYDROBROMIDE [Concomitant]
     Route: 065

REACTIONS (7)
  - AGGRESSION [None]
  - ANXIETY [None]
  - DIZZINESS [None]
  - DRUG WITHDRAWAL SYNDROME [None]
  - PANIC ATTACK [None]
  - SENSORY DISTURBANCE [None]
  - TREMOR [None]
